FAERS Safety Report 19112928 (Version 1)
Quarter: 2021Q2

REPORT INFORMATION
  Report Type: Spontaneous
  Country: US (occurrence: US)
  Receive Date: 20210409
  Receipt Date: 20210409
  Transmission Date: 20210717
  Serious: No
  Sender: FDA-Public Use
  Company Number: US-ALLERGAN-2044729US

PATIENT
  Age: 30 Year
  Sex: Female

DRUGS (2)
  1. TRAZODONE [Concomitant]
     Active Substance: TRAZODONE HYDROCHLORIDE
  2. LILETTA [Suspect]
     Active Substance: LEVONORGESTREL
     Indication: ABNORMAL UTERINE BLEEDING
     Dosage: 52 MG, SINGLE
     Route: 015
     Dates: start: 20201030, end: 20201030

REACTIONS (3)
  - Off label use [Unknown]
  - Uterine spasm [Unknown]
  - Procedural pain [Unknown]

NARRATIVE: CASE EVENT DATE: 20201030
